FAERS Safety Report 14875935 (Version 4)
Quarter: 2019Q2

REPORT INFORMATION
  Report Type: Spontaneous
  Country: US (occurrence: US)
  Receive Date: 20180510
  Receipt Date: 20190409
  Transmission Date: 20190711
  Serious: Yes (Other)
  Sender: FDA-Public Use
  Company Number: US-ASTRAZENECA-2018SE51986

PATIENT
  Age: 14762 Day
  Sex: Male

DRUGS (25)
  1. LOVASTATIN. [Concomitant]
     Active Substance: LOVASTATIN
  2. TUMS [Concomitant]
     Active Substance: CALCIUM CARBONATE
  3. PREVACID 24 HR [Suspect]
     Active Substance: LANSOPRAZOLE
     Route: 065
     Dates: start: 2009, end: 2012
  4. CARVEDILOL. [Concomitant]
     Active Substance: CARVEDILOL
  5. NEXIUM 24HR [Suspect]
     Active Substance: ESOMEPRAZOLE MAGNESIUM
     Route: 048
     Dates: start: 2005, end: 2012
  6. PRILOSEC [Suspect]
     Active Substance: OMEPRAZOLE MAGNESIUM
     Route: 048
     Dates: start: 2000
  7. HUMULIN NOS [Concomitant]
     Active Substance: INSULIN HUMAN
  8. NOVOLOG [Concomitant]
     Active Substance: INSULIN ASPART
  9. CARVEDILOL. [Concomitant]
     Active Substance: CARVEDILOL
  10. RENVELA [Concomitant]
     Active Substance: SEVELAMER CARBONATE
  11. DIOVAN [Concomitant]
     Active Substance: VALSARTAN
  12. PRILOSEC OTC [Suspect]
     Active Substance: OMEPRAZOLE MAGNESIUM
     Route: 048
     Dates: start: 2000
  13. NEXIUM [Suspect]
     Active Substance: ESOMEPRAZOLE MAGNESIUM
     Route: 048
     Dates: start: 2000, end: 2017
  14. PREVACID 24 HR [Suspect]
     Active Substance: LANSOPRAZOLE
     Route: 065
     Dates: start: 2005, end: 2012
  15. LANTUS [Concomitant]
     Active Substance: INSULIN GLARGINE
  16. PROTONIX [Suspect]
     Active Substance: PANTOPRAZOLE SODIUM
     Route: 065
     Dates: start: 2000
  17. LISINOPRIL. [Concomitant]
     Active Substance: LISINOPRIL
  18. LOVASTATIN. [Concomitant]
     Active Substance: LOVASTATIN
  19. VITAMIN D2 [Concomitant]
     Active Substance: ERGOCALCIFEROL
  20. NEXIUM [Suspect]
     Active Substance: ESOMEPRAZOLE MAGNESIUM
     Route: 048
     Dates: start: 2000
  21. PRILOSEC [Suspect]
     Active Substance: OMEPRAZOLE MAGNESIUM
     Route: 048
     Dates: start: 2000, end: 2017
  22. PRILOSEC OTC [Suspect]
     Active Substance: OMEPRAZOLE MAGNESIUM
     Route: 048
     Dates: start: 2000, end: 2017
  23. SODIUM CARBONATE [Concomitant]
     Active Substance: SODIUM CARBONATE
     Route: 065
  24. SODIUM BICARBONATE. [Concomitant]
     Active Substance: SODIUM BICARBONATE
  25. SENSIPAR [Concomitant]
     Active Substance: CINACALCET HYDROCHLORIDE

REACTIONS (4)
  - Acute kidney injury [Not Recovered/Not Resolved]
  - Chronic kidney disease [Not Recovered/Not Resolved]
  - Renal failure [Not Recovered/Not Resolved]
  - End stage renal disease [Not Recovered/Not Resolved]

NARRATIVE: CASE EVENT DATE: 20050902
